FAERS Safety Report 18349714 (Version 1)
Quarter: 2020Q4

REPORT INFORMATION
  Report Type: Spontaneous
  Country: US (occurrence: US)
  Receive Date: 20201006
  Receipt Date: 20201006
  Transmission Date: 20210114
  Serious: No
  Sender: FDA-Public Use
  Company Number: US-MACLEODS PHARMACEUTICALS US LTD-MAC2020028258

PATIENT

DRUGS (1)
  1. IBANDRONATE 150MG [Suspect]
     Active Substance: IBANDRONATE SODIUM
     Indication: PRODUCT USED FOR UNKNOWN INDICATION
     Dosage: 150 MILLIGRAM, MANUFACTURED FROM A DIFFERENT COMPANY
     Route: 065

REACTIONS (1)
  - Adverse drug reaction [Unknown]
